FAERS Safety Report 8177954-3 (Version None)
Quarter: 2012Q1

REPORT INFORMATION
  Report Type: 
  Country: None (occurrence: None)
  Receive Date: 20120301
  Receipt Date: 20120228
  Transmission Date: 20120608
  Serious: Yes (Death)
  Sender: FDA-Public Use
  Company Number: JP-BAYER-2011-097133

PATIENT
  Age: 77 Year
  Sex: Male
  Weight: 41 kg

DRUGS (13)
  1. PREDNISOLONE [Concomitant]
     Indication: GENERAL PHYSICAL HEALTH DETERIORATION
  2. LAXOBERON [Concomitant]
     Indication: INFREQUENT BOWEL MOVEMENTS
     Dosage: DAILY DOSE 7.5 MG
     Route: 048
     Dates: start: 20110906, end: 20111214
  3. ADALAT CC [Concomitant]
     Dosage: DAILY DOSE 80 MG
     Route: 048
     Dates: start: 20110624, end: 20111214
  4. ONEALFA [Concomitant]
     Indication: HYPOCALCAEMIA
     Dosage: DAILY DOSE .5 ?G
     Route: 048
     Dates: start: 20111024, end: 20111214
  5. PREDNISOLONE [Concomitant]
     Indication: DECREASED APPETITE
     Dosage: DAILY DOSE 10 MG
     Route: 048
     Dates: start: 20111001, end: 20111214
  6. LOXONIN [Concomitant]
     Indication: PAIN MANAGEMENT
     Dosage: DAILY DOSE 120 MG
     Route: 048
     Dates: start: 20110524, end: 20111214
  7. SENNOSIDE [Concomitant]
     Indication: INFREQUENT BOWEL MOVEMENTS
     Dosage: DAILY DOSE 12 MG
     Route: 048
     Dates: start: 20110622, end: 20111214
  8. NEXAVAR [Suspect]
     Dosage: 400 MG, BID
     Route: 048
     Dates: start: 20110923, end: 20110929
  9. NEXAVAR [Suspect]
     Dosage: DAILY DOSE 600 MG
     Route: 048
     Dates: start: 20110930
  10. FAMOTIDINE [Concomitant]
     Indication: GASTRITIS PROPHYLAXIS
     Dosage: DAILY DOSE 40 MG
     Route: 048
     Dates: start: 20110702, end: 20111214
  11. NEXAVAR [Suspect]
     Indication: RENAL CELL CARCINOMA
     Dosage: DAILY DOSE 400 MG
     Route: 048
     Dates: start: 20110825
  12. PANTOSIN [Concomitant]
     Indication: INFREQUENT BOWEL MOVEMENTS
     Dosage: DAILY DOSE 300 MG
     Route: 048
     Dates: start: 20110903, end: 20111214
  13. NEXAVAR [Suspect]
     Dosage: 400MG DAILY
     Dates: end: 20111214

REACTIONS (3)
  - GASTROINTESTINAL HAEMORRHAGE [None]
  - CIRCULATORY COLLAPSE [None]
  - PALMAR-PLANTAR ERYTHRODYSAESTHESIA SYNDROME [None]
